FAERS Safety Report 11399732 (Version 5)
Quarter: 2015Q4

REPORT INFORMATION
  Report Type: Report from Study
  Country: CA (occurrence: CA)
  Receive Date: 20150820
  Receipt Date: 20151020
  Transmission Date: 20160304
  Serious: Yes (Death, Hospitalization)
  Sender: FDA-Public Use
  Company Number: PHHY2014CA117572

PATIENT
  Age: 85 Year
  Sex: Male

DRUGS (3)
  1. SANDOSTATIN [Suspect]
     Active Substance: OCTREOTIDE ACETATE
     Indication: NEUROENDOCRINE CARCINOMA
     Dosage: 100 UG, ONCE/SINGLE (TEST DOSE)
     Route: 058
     Dates: start: 20140905, end: 20140905
  2. SANDOSTATIN LAR DEPOT [Suspect]
     Active Substance: OCTREOTIDE ACETATE
     Dosage: 60 MG, QMO (EVERY 4 WEEKS)
     Route: 030
     Dates: end: 20150919
  3. SANDOSTATIN LAR DEPOT [Suspect]
     Active Substance: OCTREOTIDE ACETATE
     Indication: NEUROENDOCRINE CARCINOMA
     Dosage: 30 MG, QMO (EVERY 28 DAYS)
     Route: 030
     Dates: start: 20140916

REACTIONS (23)
  - Movement disorder [Unknown]
  - Memory impairment [Unknown]
  - Diarrhoea [Unknown]
  - Injection site pain [Unknown]
  - Stress [Unknown]
  - Muscular weakness [Unknown]
  - Death [Fatal]
  - Anxiety [Unknown]
  - Mobility decreased [Unknown]
  - Feeling hot [Recovered/Resolved]
  - Pain in extremity [Not Recovered/Not Resolved]
  - Peripheral swelling [Not Recovered/Not Resolved]
  - Asthenia [Unknown]
  - Nausea [Unknown]
  - Influenza [Unknown]
  - Eating disorder [Recovering/Resolving]
  - Blood pressure systolic increased [Unknown]
  - Dizziness [Unknown]
  - Insomnia [Unknown]
  - Abasia [Unknown]
  - Frequent bowel movements [Unknown]
  - Mental impairment [Unknown]
  - Vomiting [Unknown]

NARRATIVE: CASE EVENT DATE: 20140906
